FAERS Safety Report 20552049 (Version 1)
Quarter: 2022Q1

REPORT INFORMATION
  Report Type: Report from Study
  Country: US (occurrence: US)
  Receive Date: 20220304
  Receipt Date: 20220304
  Transmission Date: 20220423
  Serious: No
  Sender: FDA-Public Use
  Company Number: US-NOVARTISTESTPH-NVSC2022US051593

PATIENT
  Sex: Female

DRUGS (1)
  1. ENTRESTO [Suspect]
     Active Substance: SACUBITRIL\VALSARTAN
     Indication: Product used for unknown indication
     Dosage: UNK UNK 24/26MG (SACUBITRIL 24.3, VALSATAN 25.7), BID
     Route: 048
     Dates: start: 20220218

REACTIONS (2)
  - Throat clearing [Unknown]
  - Inappropriate schedule of product administration [Unknown]
